FAERS Safety Report 4406225-3 (Version None)
Quarter: 2004Q3

REPORT INFORMATION
  Report Type: 
  Country: None (occurrence: None)
  Receive Date: 20040723
  Receipt Date: 20040524
  Transmission Date: 20050211
  Serious: No
  Sender: FDA-Public Use
  Company Number: US-GLAXOSMITHKLINE-A0511900A

PATIENT
  Age: 52 Year
  Sex: Female

DRUGS (13)
  1. AVANDIA [Suspect]
     Dosage: 2MG PER DAY
     Route: 048
     Dates: start: 20040522
  2. NEORAL [Concomitant]
  3. RAPAMUNE [Concomitant]
  4. PREDNISONE [Concomitant]
  5. BACTRIM [Concomitant]
  6. MULTI-VITAMIN [Concomitant]
  7. IRON SUPPLEMENT [Concomitant]
  8. NORVASC [Concomitant]
  9. CLONIDINE HCL [Concomitant]
  10. LABETALOL HCL [Concomitant]
  11. CARDURA [Concomitant]
  12. COZAAR [Concomitant]
  13. LIPITOR [Concomitant]

REACTIONS (2)
  - POLLAKIURIA [None]
  - URINE OUTPUT INCREASED [None]
